FAERS Safety Report 15533682 (Version 1)
Quarter: 2018Q4

REPORT INFORMATION
  Report Type: Spontaneous
  Country: US (occurrence: US)
  Receive Date: 20181019
  Receipt Date: 20181019
  Transmission Date: 20190205
  Serious: Yes (Life-Threatening, Hospitalization, Other)
  Sender: FDA-Public Use
  Company Number: US-MIST-TIR-2018-1072

PATIENT
  Sex: Female
  Weight: 87.17 kg

DRUGS (2)
  1. TIROSINT [Suspect]
     Active Substance: LEVOTHYROXINE SODIUM
     Indication: THYROIDECTOMY
     Dosage: 125MCG DAILY
     Route: 048
     Dates: start: 2018
  2. TIROSINT [Suspect]
     Active Substance: LEVOTHYROXINE SODIUM
     Indication: RADIOACTIVE IODINE THERAPY
     Dosage: 125MCG DAILY
     Route: 048
     Dates: start: 201511

REACTIONS (3)
  - Brain oedema [Unknown]
  - Headache [Unknown]
  - Acoustic neuroma [Unknown]

NARRATIVE: CASE EVENT DATE: 2016
